FAERS Safety Report 17216643 (Version 2)
Quarter: 2020Q3

REPORT INFORMATION
  Report Type: Report from Study
  Country: None (occurrence: US)
  Receive Date: 20191230
  Receipt Date: 20200715
  Transmission Date: 20201102
  Serious: Yes (Hospitalization, Other)
  Sender: FDA-Public Use
  Company Number: US-ABBVIE-19K-163-3211991-00

PATIENT
  Age: 81 Year
  Sex: Female

DRUGS (1)
  1. DUOPA [Suspect]
     Active Substance: CARBIDOPA\LEVODOPA
     Indication: PARKINSON^S DISEASE
     Route: 050
     Dates: start: 20180723

REACTIONS (7)
  - Abdominal pain [Recovered/Resolved]
  - Living in residential institution [Unknown]
  - Stoma site discharge [Unknown]
  - Stoma site pain [Unknown]
  - Large intestinal obstruction [Recovered/Resolved]
  - Proctalgia [Unknown]
  - Flatulence [Unknown]

NARRATIVE: CASE EVENT DATE: 201912
